FAERS Safety Report 4976125-9 (Version None)
Quarter: 2006Q2

REPORT INFORMATION
  Report Type: 
  Country: None (occurrence: None)
  Receive Date: 20060411
  Receipt Date: 20060330
  Transmission Date: 20061013
  Serious: Yes (Other)
  Sender: FDA-Public Use
  Company Number: 2006-DE-01678GD

PATIENT
  Age: 45 Year
  Sex: Male

DRUGS (1)
  1. MORPHINE [Suspect]
     Dosage: INITIAL DOSAGE OF 10MG/D INCREASED TO A PEAK DOSAGE OF 32 MG/D OVERA PERIOD OF 17 MONTHS, IT
     Route: 038

REACTIONS (5)
  - CATHETER SITE RELATED REACTION [None]
  - GRANULOMA [None]
  - MUSCLE SPASTICITY [None]
  - NERVOUS SYSTEM DISORDER [None]
  - SPINAL CORD COMPRESSION [None]
